FAERS Safety Report 7021171-7 (Version None)
Quarter: 2010Q3

REPORT INFORMATION
  Report Type: 
  Country: None (occurrence: None)
  Receive Date: 20100929
  Receipt Date: 20100921
  Transmission Date: 20110219
  Serious: Yes (Other)
  Sender: FDA-Public Use
  Company Number: CHPA2010US14986

PATIENT
  Age: 78 Year
  Sex: Female
  Weight: 68.027 kg

DRUGS (1)
  1. MAALOX MS TOTAL STOMACH RELIEF (NCH) [Suspect]
     Indication: DYSPEPSIA
     Dosage: 3 TSP, QD
     Route: 048
     Dates: start: 20100901, end: 20100901

REACTIONS (2)
  - FAECES DISCOLOURED [None]
  - OFF LABEL USE [None]
